FAERS Safety Report 6819583-7 (Version None)
Quarter: 2010Q3

REPORT INFORMATION
  Report Type: 
  Country: None (occurrence: None)
  Receive Date: 20100701
  Receipt Date: 20090820
  Transmission Date: 20110219
  Serious: No
  Sender: FDA-Public Use
  Company Number: US-TEVA-205213USA

PATIENT
  Sex: Male

DRUGS (5)
  1. AZILECT [Suspect]
     Indication: PARKINSON'S DISEASE
     Route: 048
     Dates: start: 20070607
  2. AMANTADINE HCL [Concomitant]
     Indication: PARKINSON'S DISEASE
     Route: 048
  3. MORNIFLUMATE [Concomitant]
     Indication: BENIGN PROSTATIC HYPERPLASIA
     Route: 048
  4. SINEMET [Concomitant]
     Indication: PARKINSON'S DISEASE
     Dosage: 25MG/100MG
     Route: 048
  5. CARBIDOPA [Concomitant]
     Route: 048

REACTIONS (1)
  - HYPOTENSION [None]
